FAERS Safety Report 5338566-X (Version None)
Quarter: 2007Q2

REPORT INFORMATION
  Report Type: 
  Country: None (occurrence: None)
  Receive Date: 20070530
  Receipt Date: 20070515
  Transmission Date: 20071010
  Serious: Yes (Other)
  Sender: FDA-Public Use
  Company Number: JP-ROCHE-498229

PATIENT
  Age: 26 Year
  Sex: Female

DRUGS (1)
  1. ROCEPHIN [Suspect]
     Route: 041

REACTIONS (1)
  - DYSPNOEA [None]
